FAERS Safety Report 4355547-3 (Version None)
Quarter: 2004Q2

REPORT INFORMATION
  Report Type: 
  Country: None (occurrence: None)
  Receive Date: 20040505
  Receipt Date: 20030407
  Transmission Date: 20050107
  Serious: Yes (Life-Threatening)
  Sender: FDA-Public Use
  Company Number: 10037475-SB02DF4-1

PATIENT
  Sex: Female
  Weight: 62.3 kg

DRUGS (3)
  1. ARB2323 LACTATED RINGERS INJ [Suspect]
     Indication: PREOPERATIVE CARE
     Dosage: 500ML, CONTINUOUS, INTRAVENOUS
     Route: 042
     Dates: start: 20030212
  2. BUPIVACAINE [Concomitant]
  3. FENTANYL [Concomitant]

REACTIONS (5)
  - ANAPHYLACTIC SHOCK [None]
  - HYPERSENSITIVITY [None]
  - HYPOTENSION [None]
  - RASH PAPULAR [None]
  - URTICARIA [None]
